FAERS Safety Report 13967821 (Version 1)
Quarter: 2017Q3

REPORT INFORMATION
  Report Type: Spontaneous
  Country: DE (occurrence: DE)
  Receive Date: 20170914
  Receipt Date: 20170914
  Transmission Date: 20171128
  Serious: Yes (Other)
  Sender: FDA-Public Use
  Company Number: GXKR2017DE004589

PATIENT
  Age: 80 Year
  Sex: Female

DRUGS (1)
  1. ZOLPIDEM [Suspect]
     Active Substance: ZOLPIDEM\ZOLPIDEM TARTRATE
     Indication: SLEEP DISORDER
     Dosage: 10 MG, ONCE/SINGLE
     Route: 048

REACTIONS (3)
  - Unresponsive to stimuli [Unknown]
  - Musculoskeletal stiffness [Unknown]
  - Drug dispensing error [Unknown]
